FAERS Safety Report 9121541 (Version 1)
Quarter: 2013Q1

REPORT INFORMATION
  Report Type: Spontaneous
  Country: GB (occurrence: GB)
  Receive Date: 20130227
  Receipt Date: 20130227
  Transmission Date: 20140127
  Serious: Yes (Other)
  Sender: FDA-Public Use
  Company Number: GB-009507513-1302GBR011006

PATIENT
  Age: 29 Year
  Sex: Female
  Weight: 43 kg

DRUGS (3)
  1. MIRTAZAPINE [Suspect]
     Indication: DEPRESSION
     Dosage: 15 MG
     Route: 048
     Dates: start: 20130130, end: 20130204
  2. MIRTAZAPINE [Suspect]
     Indication: INSOMNIA
  3. ZOPICLONE [Concomitant]
     Indication: INSOMNIA
     Dosage: 7.5 MG, 1/1 DAYS
     Route: 048
     Dates: end: 20130203

REACTIONS (5)
  - Local swelling [Recovering/Resolving]
  - Swelling face [Recovering/Resolving]
  - Dermatitis allergic [Recovering/Resolving]
  - Urticaria [Recovering/Resolving]
  - Dyspnoea [Recovering/Resolving]
